FAERS Safety Report 7433494-8 (Version None)
Quarter: 2011Q2

REPORT INFORMATION
  Report Type: 
  Country: None (occurrence: None)
  Receive Date: 20110422
  Receipt Date: 20110228
  Transmission Date: 20111010
  Serious: No
  Sender: FDA-Public Use
  Company Number: US-MUTUAL PHARMACEUTICAL COMPANY, INC.-CLCY20110021

PATIENT
  Sex: Female
  Weight: 57.658 kg

DRUGS (9)
  1. ASTEPRO [Concomitant]
     Indication: RHINORRHOEA
     Route: 045
     Dates: start: 20090101
  2. LEVOXYL [Concomitant]
     Indication: HYPOTHYROIDISM
     Route: 048
     Dates: start: 20080101
  3. INDOMETHACIN [Concomitant]
     Indication: ARTHRALGIA
     Route: 065
     Dates: start: 20090101
  4. COLCRYS [Suspect]
     Indication: CHONDROCALCINOSIS PYROPHOSPHATE
     Route: 048
     Dates: start: 20110127, end: 20110201
  5. COLCRYS [Suspect]
     Dates: start: 20110301
  6. NEXIUM [Concomitant]
     Indication: PROPHYLAXIS
     Route: 048
     Dates: start: 20070101
  7. LYRICA [Concomitant]
     Indication: ARTHRALGIA
     Route: 048
     Dates: start: 20090101
  8. METHOTREXATE [Concomitant]
     Indication: RHEUMATOID ARTHRITIS
     Route: 048
     Dates: start: 20090101
  9. FOLIC ACID [Concomitant]
     Indication: FOLATE DEFICIENCY
     Route: 048
     Dates: start: 20090101

REACTIONS (2)
  - INSOMNIA [None]
  - DIARRHOEA [None]
